FAERS Safety Report 21281537 (Version 3)
Quarter: 2022Q4

REPORT INFORMATION
  Report Type: Report from Study
  Country: US (occurrence: US)
  Receive Date: 20220901
  Receipt Date: 20221013
  Transmission Date: 20230112
  Serious: Yes (Death, Hospitalization, Other)
  Sender: FDA-Public Use
  Company Number: US-MMM-VL71GNYM

PATIENT

DRUGS (1)
  1. BELANTAMAB MAFODOTIN [Suspect]
     Active Substance: BELANTAMAB MAFODOTIN
     Indication: Plasma cell myeloma
     Dosage: UNK
     Route: 042
     Dates: start: 20210525, end: 20220602

REACTIONS (24)
  - Disease complication [Fatal]
  - Neutropenic sepsis [Fatal]
  - Respiratory failure [Fatal]
  - Acute respiratory distress syndrome [Fatal]
  - Lactic acidosis [Fatal]
  - Pancytopenia [Fatal]
  - Hypertransaminasaemia [Unknown]
  - Peripheral ischaemia [Unknown]
  - Plasma cell myeloma [Unknown]
  - Pneumonia [Unknown]
  - Shock [Unknown]
  - Keratopathy [Recovered/Resolved with Sequelae]
  - Visual acuity reduced [Unknown]
  - Ocular toxicity [Unknown]
  - Eye disorder [Unknown]
  - Pulse absent [Unknown]
  - Dyspnoea [Unknown]
  - Heart rate increased [Unknown]
  - Pyrexia [Unknown]
  - Aspartate aminotransferase increased [Unknown]
  - Alanine aminotransferase increased [Unknown]
  - Heart rate increased [Unknown]
  - Blood creatine increased [Unknown]
  - Hypercapnia [Unknown]

NARRATIVE: CASE EVENT DATE: 20220118
